FAERS Safety Report 16520149 (Version 1)
Quarter: 2019Q3

REPORT INFORMATION
  Report Type: Spontaneous
  Country: US (occurrence: US)
  Receive Date: 20190702
  Receipt Date: 20190702
  Transmission Date: 20191004
  Serious: No
  Sender: FDA-Public Use
  Company Number: US-TARO-2018TAR00867

PATIENT
  Age: 64 Year
  Sex: Male

DRUGS (1)
  1. AMMONIUM LACTATE LOTION 12% (BASE) [Suspect]
     Active Substance: AMMONIUM LACTATE
     Indication: PRURITUS
     Dosage: UNK UNK, AS NEEDED
     Route: 061

REACTIONS (4)
  - Therapeutic product effect incomplete [Not Recovered/Not Resolved]
  - Dry eye [Not Recovered/Not Resolved]
  - Dry skin [Not Recovered/Not Resolved]
  - Product quality issue [Not Recovered/Not Resolved]
